FAERS Safety Report 23882993 (Version 1)
Quarter: 2024Q2

REPORT INFORMATION
  Report Type: Spontaneous
  Country: CA (occurrence: CA)
  Receive Date: 20240522
  Receipt Date: 20240522
  Transmission Date: 20240716
  Serious: Yes (Other)
  Sender: FDA-Public Use
  Company Number: CA-009507513-2405CAN005578

PATIENT
  Age: 45 Year
  Sex: Female
  Weight: 70.295 kg

DRUGS (1)
  1. KEYTRUDA [Suspect]
     Active Substance: PEMBROLIZUMAB
     Indication: Neoplasm malignant
     Dosage: 200 MILLIGRAM EVERY 3 WEEKS; DOSAGE FORM: SOLUTION INTRAVENOUS
     Route: 042

REACTIONS (3)
  - Chest tube insertion [Unknown]
  - Dyspnoea [Unknown]
  - Pleural effusion [Unknown]
